FAERS Safety Report 17238005 (Version 1)
Quarter: 2020Q1

REPORT INFORMATION
  Report Type: Spontaneous
  Country: US (occurrence: US)
  Receive Date: 20200106
  Receipt Date: 20200106
  Transmission Date: 20200409
  Serious: No
  Sender: FDA-Public Use
  Company Number: US-PACIRA-201900073

PATIENT
  Sex: Female

DRUGS (1)
  1. EXPAREL [Suspect]
     Active Substance: BUPIVACAINE
     Indication: ROTATOR CUFF REPAIR
     Dosage: 133 MG, SINGLE, FREQUENCY : SINGLE

REACTIONS (3)
  - Pain [Not Recovered/Not Resolved]
  - Therapeutic product effect variable [Not Recovered/Not Resolved]
  - Behaviour disorder due to a general medical condition [Not Recovered/Not Resolved]
